FAERS Safety Report 23558364 (Version 1)
Quarter: 2024Q1

REPORT INFORMATION
  Report Type: Other
  Country: ZA (occurrence: None)
  Receive Date: 20240223
  Receipt Date: 20240223
  Transmission Date: 20240410
  Serious: Yes (Other)
  Sender: FDA-Public Use
  Company Number: ZA-ROCHE-3510046

PATIENT
  Sex: Female

DRUGS (1)
  1. OCREVUS [Suspect]
     Active Substance: OCRELIZUMAB
     Indication: Primary progressive multiple sclerosis
     Dosage: SUBSEQUENT DOSE RECEIVED ON MAY/2023?THEREAFTER 600MG EVERY 6 MONTHS
     Route: 041
     Dates: start: 20230424

REACTIONS (6)
  - Paraparesis [Unknown]
  - Muscular weakness [Unknown]
  - Expanded disability status scale score increased [Unknown]
  - CD19 lymphocytes increased [Unknown]
  - B-lymphocyte count increased [Unknown]
  - Blood immunoglobulin G increased [Unknown]
